FAERS Safety Report 6419570-7 (Version None)
Quarter: 2009Q4

REPORT INFORMATION
  Report Type: 
  Country: None (occurrence: None)
  Receive Date: 20091027
  Receipt Date: 20091014
  Transmission Date: 20100525
  Serious: Yes (Life-Threatening, Hospitalization, Other)
  Sender: FDA-Public Use
  Company Number: 230014J09CAN

PATIENT
  Age: 60 Year
  Sex: Female

DRUGS (18)
  1. REBIF [Suspect]
     Indication: RELAPSING-REMITTING MULTIPLE SCLEROSIS
     Dosage: 44 MCG, 3 IN 1 WEEKS, SUBCUTANEOUS
     Route: 058
     Dates: start: 20090729, end: 20090827
  2. AMANTADINE HCL [Concomitant]
  3. GABAPENTIN [Concomitant]
  4. NOVA DIFEMAC  [NOVO DIFEMAC] (DICLOFENAC SODIUM) [Concomitant]
  5. CYCLOBENZAPRINE [Concomitant]
  6. ATIVAN [Concomitant]
  7. DIAZEPAM [Concomitant]
  8. TRAZODONE HCL [Concomitant]
  9. NORTRIPTYLINE (NORTRIPTYLINE /00006501/) [Concomitant]
  10. NOVOTRIMEL (BACTRIM /00086101/) [Concomitant]
  11. NITROFURANTOIN [Concomitant]
  12. BISOPROLOL FUMARATE [Concomitant]
  13. LANSOPRAZOLE [Concomitant]
  14. CO CITALOPRAM [CITALOPRAM] (CITALOPRAM /00582601/) [Concomitant]
  15. LOXAPINE LUCCINATE [LOXAPINE SUCCINATE] (LOXAPINE SUCCINATE) [Concomitant]
  16. BISOPROLOL (BISOPROLOL /00802601/) [Concomitant]
  17. RAN RABEPRAZOLE [RABEPRAZOLE] (RABEPRAZOLE) [Concomitant]
  18. RAN-CITALO [CITALOPRAM HYDROBROMIDE] [Concomitant]

REACTIONS (14)
  - ABNORMAL BEHAVIOUR [None]
  - CONSTIPATION [None]
  - DYSPHONIA [None]
  - FEAR [None]
  - GAIT DISTURBANCE [None]
  - HYPERSENSITIVITY [None]
  - MEMORY IMPAIRMENT [None]
  - MUSCLE RIGIDITY [None]
  - MUSCULOSKELETAL STIFFNESS [None]
  - PROCEDURAL COMPLICATION [None]
  - RESPIRATORY DISTRESS [None]
  - RHABDOMYOLYSIS [None]
  - SPEECH DISORDER [None]
  - TREMOR [None]
